FAERS Safety Report 8162598-X (Version None)
Quarter: 2012Q1

REPORT INFORMATION
  Report Type: 
  Country: None (occurrence: None)
  Receive Date: 20120224
  Receipt Date: 20120213
  Transmission Date: 20120608
  Serious: Yes (Hospitalization)
  Sender: FDA-Public Use
  Company Number: BR-NOVOPROD-342872

PATIENT
  Age: 35 Year
  Sex: Female
  Weight: 92.6 kg

DRUGS (1)
  1. LIRAGLUTIDE FLEXPEN [Suspect]
     Indication: OBESITY
     Dosage: 3 MG, QD
     Route: 058
     Dates: start: 20110704, end: 20111209

REACTIONS (1)
  - CHOLECYSTITIS ACUTE [None]
